FAERS Safety Report 11424697 (Version 1)
Quarter: 2015Q3

REPORT INFORMATION
  Report Type: Spontaneous
  Country: US (occurrence: US)
  Receive Date: 20150827
  Receipt Date: 20150827
  Transmission Date: 20151125
  Serious: Yes (Hospitalization)
  Sender: FDA-Public Use
  Company Number: US-BAYER-2015-407139

PATIENT
  Sex: Female

DRUGS (2)
  1. PREDNISONE. [Concomitant]
     Active Substance: PREDNISONE
     Dosage: 5 MG, QD
     Dates: start: 1970
  2. ALEVE [Suspect]
     Active Substance: NAPROXEN SODIUM

REACTIONS (7)
  - Fluid retention [Recovered/Resolved]
  - Gastrooesophageal reflux disease [None]
  - Dysgeusia [None]
  - Peripheral swelling [None]
  - Joint swelling [None]
  - Generalised oedema [None]
  - Weight increased [Recovered/Resolved]

NARRATIVE: CASE EVENT DATE: 20150330
